FAERS Safety Report 12406622 (Version 2)
Quarter: 2016Q2

REPORT INFORMATION
  Report Type: Report from Study
  Country: CA (occurrence: CA)
  Receive Date: 20160526
  Receipt Date: 20160531
  Transmission Date: 20160815
  Serious: Yes (Other)
  Sender: FDA-Public Use
  Company Number: CA-AMGEN-CANSL2016064848

PATIENT
  Age: 74 Year
  Sex: Female
  Weight: 51.4 kg

DRUGS (1)
  1. NPLATE [Suspect]
     Active Substance: ROMIPLOSTIM
     Indication: PRODUCT USED FOR UNKNOWN INDICATION
     Dosage: 250 MUG/0.5ML,UNK
     Route: 065

REACTIONS (2)
  - Skin cancer [Unknown]
  - Myalgia [Recovering/Resolving]
